FAERS Safety Report 20236456 (Version 10)
Quarter: 2022Q4

REPORT INFORMATION
  Report Type: Report from Study
  Country: US (occurrence: US)
  Receive Date: 20211228
  Receipt Date: 20221017
  Transmission Date: 20230113
  Serious: No
  Sender: FDA-Public Use
  Company Number: US-NOVARTISTESTPH-NVSC2021US293780

PATIENT
  Sex: Male

DRUGS (3)
  1. KESIMPTA [Suspect]
     Active Substance: OFATUMUMAB
     Indication: Product used for unknown indication
     Dosage: UNK
     Route: 065
     Dates: start: 20211202
  2. KESIMPTA [Suspect]
     Active Substance: OFATUMUMAB
     Dosage: UNK
     Route: 065
  3. TYLENOL [Concomitant]
     Active Substance: ACETAMINOPHEN
     Indication: Product used for unknown indication
     Dosage: UNK
     Route: 065

REACTIONS (14)
  - Muscle spasms [Recovering/Resolving]
  - Incontinence [Unknown]
  - Amnesia [Unknown]
  - Asthenia [Unknown]
  - Chills [Unknown]
  - Nasopharyngitis [Unknown]
  - Cough [Unknown]
  - Mobility decreased [Unknown]
  - Hypoaesthesia [Unknown]
  - Fall [Unknown]
  - Injection site pain [Unknown]
  - Drug ineffective [Recovered/Resolved]
  - Inappropriate schedule of product administration [Unknown]
  - Product distribution issue [Unknown]
